FAERS Safety Report 6620547-7 (Version None)
Quarter: 2010Q1

REPORT INFORMATION
  Report Type: 
  Country: None (occurrence: None)
  Receive Date: 20100309
  Receipt Date: 20100303
  Transmission Date: 20100710
  Serious: Yes (Hospitalization, Other)
  Sender: FDA-Public Use
  Company Number: US-ELI_LILLY_AND_COMPANY-US201003001365

PATIENT
  Sex: Female

DRUGS (12)
  1. HUMULIN N [Suspect]
     Indication: DIABETES MELLITUS
     Dosage: 26 U, EACH MORNING
     Dates: start: 20090101
  2. HUMULIN N [Suspect]
     Dosage: 10 U, EACH EVENING
     Dates: start: 20090101
  3. HUMULIN N [Suspect]
     Dates: start: 19860101
  4. ASPIRIN [Concomitant]
     Dosage: 325 MG, UNKNOWN
  5. DIOVAN [Concomitant]
     Dosage: 160 MG, UNKNOWN
  6. CENTRUM [Concomitant]
  7. CHONDROITIN [Concomitant]
  8. METFORMIN HYDROCHLORIDE [Concomitant]
  9. WARFARIN SODIUM [Concomitant]
  10. VITAMIN D [Concomitant]
  11. AMLODIPINE [Concomitant]
  12. TYLENOL                                 /SCH/ [Concomitant]

REACTIONS (10)
  - BLOOD GLUCOSE DECREASED [None]
  - CEREBROVASCULAR ACCIDENT [None]
  - CORONARY ARTERY BYPASS [None]
  - EYE HAEMORRHAGE [None]
  - HEARING IMPAIRED [None]
  - MALAISE [None]
  - MENTAL IMPAIRMENT [None]
  - MYOCARDIAL INFARCTION [None]
  - RETINOPATHY [None]
  - VISUAL IMPAIRMENT [None]
